FAERS Safety Report 15811961 (Version 2)
Quarter: 2019Q2

REPORT INFORMATION
  Report Type: Spontaneous
  Country: JP (occurrence: JP)
  Receive Date: 20190111
  Receipt Date: 20190528
  Transmission Date: 20190711
  Serious: Yes (Hospitalization, Other)
  Sender: FDA-Public Use
  Company Number: JP-BRISTOL-MYERS SQUIBB COMPANY-BMS-2019-001984

PATIENT
  Age: 55 Year
  Sex: Female

DRUGS (3)
  1. LIDOCAINE. [Concomitant]
     Active Substance: LIDOCAINE
     Indication: TENOSYNOVITIS STENOSANS
     Dosage: 0.5 MILLILITER
     Route: 065
  2. RINDERON [BETAMETHASONE] [Suspect]
     Active Substance: BETAMETHASONE
     Indication: TENOSYNOVITIS STENOSANS
     Dosage: 5 DOSAGE FORM
     Route: 065
  3. KENACORT [Suspect]
     Active Substance: TRIAMCINOLONE
     Indication: TENOSYNOVITIS STENOSANS
     Dosage: 10 MG, UNK
     Route: 065

REACTIONS (1)
  - Osteonecrosis [Unknown]
